FAERS Safety Report 4643810-8 (Version None)
Quarter: 2005Q2

REPORT INFORMATION
  Report Type: 
  Country: None (occurrence: None)
  Receive Date: 20050422
  Receipt Date: 20050422
  Transmission Date: 20051028
  Serious: Yes (Other)
  Sender: FDA-Public Use
  Company Number: None

PATIENT
  Age: 83 Year
  Sex: Male
  Weight: 71.1 kg

DRUGS (23)
  1. TERAZOSIN [Suspect]
  2. TAMSULOSIN [Concomitant]
  3. SUGARLESS (GUAIFENESIN/DM) COUGH SYRUP [Concomitant]
  4. MILK OF MAGNESIA [Concomitant]
  5. HYPROMELLOSE [Concomitant]
  6. BEER LIQUID [Concomitant]
  7. SELENIUM SULFIDE [Concomitant]
  8. FLUOCINOLONE ACETONIDE [Concomitant]
  9. TERAZOSIN HCL [Concomitant]
  10. POTASSIUM CHLORIDE [Concomitant]
  11. NITROGLYCERIN [Concomitant]
  12. IPRATROPIUM BROMIDE [Concomitant]
  13. DOCUSATE SODIUM [Concomitant]
  14. ALBUTEROL [Concomitant]
  15. NITROGLYCERIN [Concomitant]
  16. SERTRALINE HCL [Concomitant]
  17. PRIMIDONE [Concomitant]
  18. OMEPRZOLE [Concomitant]
  19. MULTI-VITAMIN [Concomitant]
  20. FUROSEMIDE [Concomitant]
  21. DIGOXIN [Concomitant]
  22. ASPIRIN [Concomitant]
  23. ACETAMINOPHEN [Concomitant]

REACTIONS (2)
  - FALL [None]
  - HYPOTENSION [None]
